FAERS Safety Report 6295652-8 (Version None)
Quarter: 2009Q3

REPORT INFORMATION
  Report Type: 
  Country: None (occurrence: None)
  Receive Date: 20090804
  Receipt Date: 20090723
  Transmission Date: 20100115
  Serious: Yes (Hospitalization)
  Sender: FDA-Public Use
  Company Number: DE-RANBAXY-2009RR-22547

PATIENT
  Age: 65 Year
  Sex: Female
  Weight: 50 kg

DRUGS (9)
  1. RAMIPRIL [Suspect]
     Indication: HYPERTENSION
     Dosage: 5 MG, QD
     Route: 048
  2. HYDROCHLOROTHIAZIDE [Suspect]
     Indication: HYPERTENSION
     Dosage: 12.5 MG, QD
     Route: 048
     Dates: end: 20080523
  3. ACTONEL [Concomitant]
     Indication: HIP FRACTURE
     Dosage: 30 MG, 1/WEEK
     Route: 048
  4. ENOXAPARIN SODIUM [Concomitant]
     Indication: HIP FRACTURE
     Dosage: 40 MG, QD
     Route: 058
     Dates: start: 20080428
  5. FENTANYL [Concomitant]
     Indication: MULTIPLE SCLEROSIS
     Dosage: 4 MG, UNK
     Route: 062
  6. IMUREK [Concomitant]
     Indication: MULTIPLE SCLEROSIS
     Dosage: 50 MG, QD
     Route: 048
  7. METAMIZOLE [Concomitant]
     Indication: MULTIPLE SCLEROSIS
     Route: 048
  8. NULYTELY [Concomitant]
     Indication: CONSTIPATION
     Dosage: 1 DF, BID
     Route: 048
  9. TIZANIDINE HCL [Concomitant]
     Indication: MULTIPLE SCLEROSIS
     Dosage: 4 MG, QD
     Route: 048

REACTIONS (1)
  - SYNCOPE [None]
